FAERS Safety Report 6349386-1 (Version None)
Quarter: 2009Q3

REPORT INFORMATION
  Report Type: 
  Country: None (occurrence: None)
  Receive Date: 20090911
  Receipt Date: 20090904
  Transmission Date: 20100115
  Serious: Yes (Hospitalization)
  Sender: FDA-Public Use
  Company Number: JP-ABBOTT-09P-087-0596130-00

PATIENT
  Sex: Female

DRUGS (3)
  1. CLARITH [Suspect]
     Indication: HELICOBACTER INFECTION
     Route: 048
     Dates: start: 20090721, end: 20090727
  2. TAKEPRON CAPSULES [Suspect]
     Indication: HELICOBACTER INFECTION
     Dates: start: 20090721, end: 20090727
  3. PASETOCIN [Suspect]
     Indication: HELICOBACTER INFECTION
     Route: 048
     Dates: start: 20090721, end: 20090727

REACTIONS (1)
  - ECZEMA [None]
